FAERS Safety Report 16763372 (Version 1)
Quarter: 2019Q3

REPORT INFORMATION
  Report Type: Spontaneous
  Country: IE (occurrence: IE)
  Receive Date: 20190902
  Receipt Date: 20190902
  Transmission Date: 20191005
  Serious: Yes (Hospitalization, Other)
  Sender: FDA-Public Use
  Company Number: IE-AMICUS THERAPEUTICS UK LTD-AMI_526

PATIENT
  Age: 43 Year
  Sex: Male

DRUGS (1)
  1. GALAFOLD [Suspect]
     Active Substance: MIGALASTAT HYDROCHLORIDE
     Indication: FABRY^S DISEASE
     Dosage: 123 MILLIGRAM, QOD
     Route: 048
     Dates: start: 20190713, end: 20190725

REACTIONS (14)
  - Blindness transient [Recovering/Resolving]
  - Headache [Recovering/Resolving]
  - Palpitations [Unknown]
  - Tunnel vision [Recovering/Resolving]
  - Vertigo [Recovering/Resolving]
  - Dizziness [Unknown]
  - Visual impairment [Recovering/Resolving]
  - Cardiomyopathy [Unknown]
  - Tinnitus [Unknown]
  - Balance disorder [Recovering/Resolving]
  - Hallucinations, mixed [Recovering/Resolving]
  - Anxiety [Unknown]
  - Visual midline shift syndrome [Recovering/Resolving]
  - Dizziness [Recovered/Resolved]

NARRATIVE: CASE EVENT DATE: 201907
